FAERS Safety Report 13642792 (Version 1)
Quarter: 2017Q2

REPORT INFORMATION
  Report Type: Spontaneous
  Country: US (occurrence: US)
  Receive Date: 20170612
  Receipt Date: 20170612
  Transmission Date: 20170830
  Serious: No
  Sender: FDA-Public Use
  Company Number: US-SEPTODONT-201703819

PATIENT
  Age: 39 Year
  Sex: Female

DRUGS (2)
  1. SEPTOCAINE AND EPINEPHRINE [Suspect]
     Active Substance: ARTICAINE HYDROCHLORIDE\EPINEPHRINE BITARTRATE
     Indication: LOCAL ANAESTHESIA
     Dosage: #27 X 1.25^ NEEDLE
     Route: 004
     Dates: start: 20161220, end: 20161220
  2. GINGICAINE [Concomitant]

REACTIONS (3)
  - Injection site discomfort [Recovered/Resolved]
  - Lip blister [Recovered/Resolved]
  - Injection site pain [Recovered/Resolved]

NARRATIVE: CASE EVENT DATE: 20161220
